FAERS Safety Report 25498179 (Version 1)
Quarter: 2025Q3

REPORT INFORMATION
  Report Type: Spontaneous
  Country: CN (occurrence: CN)
  Receive Date: 20250701
  Receipt Date: 20250701
  Transmission Date: 20251020
  Serious: Yes (Hospitalization)
  Sender: JOHNSON AND JOHNSON
  Company Number: CN-JNJFOC-20250700218

PATIENT
  Sex: Female
  Weight: 55 kg

DRUGS (5)
  1. XARELTO [Suspect]
     Active Substance: RIVAROXABAN
     Indication: Deep vein thrombosis
     Dosage: 10 MG, QD
     Route: 048
     Dates: start: 20250220, end: 20250612
  2. XARELTO [Suspect]
     Active Substance: RIVAROXABAN
     Indication: Pulmonary embolism
  3. XARELTO [Suspect]
     Active Substance: RIVAROXABAN
     Indication: Parkinson^s disease
  4. XARELTO [Suspect]
     Active Substance: RIVAROXABAN
     Indication: Eczema
  5. XARELTO [Suspect]
     Active Substance: RIVAROXABAN
     Indication: Hepatic failure

REACTIONS (8)
  - Immune thrombocytopenia [Recovered/Resolved]
  - Connective tissue disorder [Unknown]
  - Mouth haemorrhage [Unknown]
  - COVID-19 [Unknown]
  - Underdose [Unknown]
  - Prescribed underdose [Unknown]
  - Inappropriate schedule of product administration [Unknown]
  - Product prescribing issue [Unknown]

NARRATIVE: CASE EVENT DATE: 20250101
